FAERS Safety Report 8094241-2 (Version None)
Quarter: 2012Q1

REPORT INFORMATION
  Report Type: 
  Country: None (occurrence: None)
  Receive Date: 20120131
  Receipt Date: 20120123
  Transmission Date: 20120608
  Serious: Yes (Other)
  Sender: FDA-Public Use
  Company Number: BR-PFIZER INC-2012018878

PATIENT
  Age: 64 Year
  Sex: Female
  Weight: 81 kg

DRUGS (4)
  1. VYTORIN [Concomitant]
     Indication: BLOOD CHOLESTEROL INCREASED
     Dosage: UNK
  2. LYRICA [Suspect]
     Indication: PAIN
  3. LEVOTHYROXINE SODIUM [Concomitant]
     Indication: THYROID DISORDER
     Dosage: UNK
  4. LYRICA [Suspect]
     Indication: FIBROMYALGIA
     Dosage: 75 MG, 1X/DAY (1 CAPSULE DAILY)
     Route: 048
     Dates: start: 20120101, end: 20120101

REACTIONS (7)
  - COORDINATION ABNORMAL [None]
  - POSTURE ABNORMAL [None]
  - DYSSTASIA [None]
  - DRUG INEFFECTIVE [None]
  - FEELING ABNORMAL [None]
  - DIZZINESS [None]
  - HEAD DISCOMFORT [None]
